FAERS Safety Report 12246176 (Version 1)
Quarter: 2016Q2

REPORT INFORMATION
  Report Type: Spontaneous
  Country: VE (occurrence: VE)
  Receive Date: 20160407
  Receipt Date: 20160407
  Transmission Date: 20160815
  Serious: Yes (Other)
  Sender: FDA-Public Use
  Company Number: VE-PFIZER INC-2016188514

PATIENT
  Sex: Female

DRUGS (1)
  1. DILANTIN [Suspect]
     Active Substance: PHENYTOIN
     Indication: SEIZURE

REACTIONS (5)
  - Anticonvulsant drug level decreased [Unknown]
  - Seizure [Unknown]
  - Feeling abnormal [Unknown]
  - Dizziness [Unknown]
  - Gait disturbance [Unknown]
